FAERS Safety Report 7457770-8 (Version None)
Quarter: 2011Q1

REPORT INFORMATION
  Report Type: 
  Country: None (occurrence: None)
  Receive Date: 20110302
  Receipt Date: 20100913
  Transmission Date: 20110831
  Serious: Yes (Death)
  Sender: FDA-Public Use
  Company Number: 163-21880-10083085

PATIENT
  Age: 77 Year
  Sex: Female

DRUGS (10)
  1. GLUCOPHAGE [Concomitant]
  2. ARICEPT [Concomitant]
  3. LISINOPRIL [Concomitant]
  4. XANAX [Concomitant]
  5. MORPHINE [Concomitant]
  6. TRAMADOL HCL [Concomitant]
  7. REVLIMID [Suspect]
     Indication: MULTIPLE MYELOMA
     Dosage: 25 MG, DAILY FOR 3 WEEKS ON 1 WEEK OFF, PO
     Route: 048
     Dates: start: 20100802, end: 20100801
  8. NOVOLOG [Concomitant]
  9. ATENOLOL [Concomitant]
  10. PEPCID [Concomitant]

REACTIONS (1)
  - DEATH [None]
